FAERS Safety Report 4619732-5 (Version None)
Quarter: 2005Q1

REPORT INFORMATION
  Report Type: 
  Country: None (occurrence: None)
  Receive Date: 20050325
  Receipt Date: 20050307
  Transmission Date: 20050727
  Serious: Yes (Hospitalization, Other)
  Sender: FDA-Public Use
  Company Number: US-MERCK-0503USA00966

PATIENT
  Age: 70 Year
  Sex: Female
  Weight: 45 kg

DRUGS (8)
  1. FOSAMAX [Suspect]
     Indication: OSTEOPOROSIS
     Route: 048
  2. CELEBREX [Suspect]
     Indication: ARTHRITIS
     Route: 048
     Dates: end: 20040101
  3. OS-CAL 500 + D [Suspect]
     Indication: MINERAL SUPPLEMENTATION
     Route: 048
     Dates: start: 19950101
  4. LOPRESSOR [Concomitant]
     Route: 065
  5. KLONOPIN [Concomitant]
     Route: 065
  6. VITAMINS (UNSPECIFIED) [Concomitant]
     Route: 065
  7. VITAMIN B COMPLEX [Concomitant]
     Route: 065
  8. VITAMIN E [Concomitant]
     Route: 065

REACTIONS (8)
  - BLOOD PRESSURE DECREASED [None]
  - BLOOD TEST ABNORMAL [None]
  - CARDIAC PACEMAKER INSERTION [None]
  - FULL BLOOD COUNT DECREASED [None]
  - GASTROINTESTINAL ULCER HAEMORRHAGE [None]
  - HAEMATEMESIS [None]
  - HEART RATE DECREASED [None]
  - LOSS OF CONSCIOUSNESS [None]
